FAERS Safety Report 5766496-8 (Version None)
Quarter: 2008Q2

REPORT INFORMATION
  Report Type: 
  Country: None (occurrence: None)
  Receive Date: 20080606
  Receipt Date: 20080522
  Transmission Date: 20081010
  Serious: Yes (Hospitalization)
  Sender: FDA-Public Use
  Company Number: 8032862

PATIENT
  Age: 4 Year
  Sex: Female

DRUGS (3)
  1. THEOPHYLLINE [Suspect]
     Indication: ASTHMA
  2. ANTI-ALLERGY MEDICATION [Concomitant]
  3. BETA-STIMULATOR MEDICATION [Concomitant]

REACTIONS (4)
  - GUILLAIN-BARRE SYNDROME [None]
  - HYPOREFLEXIA [None]
  - INFLUENZA [None]
  - PERONEAL NERVE PALSY [None]
